FAERS Safety Report 25709861 (Version 4)
Quarter: 2025Q3

REPORT INFORMATION
  Report Type: Report from Study
  Country: IL (occurrence: IL)
  Receive Date: 20250821
  Receipt Date: 20250916
  Transmission Date: 20251020
  Serious: Yes (Hospitalization, Other)
  Sender: DAIICHI
  Company Number: IL-AstraZeneca-CH-00930156A

PATIENT
  Age: 59 Year
  Sex: Female
  Weight: 68 kg

DRUGS (1)
  1. ENHERTU [Suspect]
     Active Substance: FAM-TRASTUZUMAB DERUXTECAN-NXKI
     Indication: Breast cancer
     Dosage: 100 MG, ONCE EVERY 3 WK
     Route: 042
     Dates: start: 20250807

REACTIONS (14)
  - Swelling face [Recovering/Resolving]
  - Vocal cord inflammation [Recovering/Resolving]
  - Mental impairment [Unknown]
  - Infection [Unknown]
  - Ear swelling [Unknown]
  - Brain fog [Unknown]
  - Asthenia [Recovered/Resolved]
  - Rash [Recovering/Resolving]
  - Dysphagia [Recovering/Resolving]
  - Haemorrhage [Recovering/Resolving]
  - Discharge [Recovering/Resolving]
  - Skin wrinkling [Unknown]
  - Weight decreased [Unknown]
  - Feeding disorder [Unknown]

NARRATIVE: CASE EVENT DATE: 20250807
